FAERS Safety Report 13497578 (Version 1)
Quarter: 2017Q2

REPORT INFORMATION
  Report Type: Spontaneous
  Country: SE (occurrence: SE)
  Receive Date: 20170428
  Receipt Date: 20170428
  Transmission Date: 20170830
  Serious: Yes (Hospitalization, Other)
  Sender: FDA-Public Use
  Company Number: SE-MYLANLABS-2017M1024805

PATIENT

DRUGS (13)
  1. FLAGYL [Concomitant]
     Active Substance: METRONIDAZOLE\METRONIDAZOLE HYDROCHLORIDE
  2. CIRCADIN [Concomitant]
     Active Substance: MELATONIN
  3. SUMATRIPTAN SANDOZ [Concomitant]
     Active Substance: SUMATRIPTAN
  4. OMEPRAZOL ACTAVIS [Concomitant]
     Active Substance: OMEPRAZOLE
  5. DOXYFERM [Concomitant]
     Active Substance: DOXYCYCLINE
  6. FLOXACILLIN SODIUM [Concomitant]
     Active Substance: FLUCLOXACILLIN SODIUM ANHYDROUS
  7. MIRENA [Concomitant]
     Active Substance: LEVONORGESTREL
  8. FLUOXETIN MYLAN 20 MG KAPSLER, HARDE [Suspect]
     Active Substance: FLUOXETINE HYDROCHLORIDE
     Dosage: 60 MG (SINGELDOS)
     Route: 048
     Dates: start: 20150505, end: 20150505
  9. IMOVANE [Suspect]
     Active Substance: ZOPICLONE
     Dosage: 60 MG (SINGELDOS)
     Route: 048
     Dates: start: 20150505, end: 20150505
  10. NAPROXEN. [Suspect]
     Active Substance: NAPROXEN
     Dosage: 4000 MG (SINGELDOS)
     Route: 048
     Dates: start: 20150505, end: 20150505
  11. LEVAXIN [Concomitant]
     Active Substance: LEVOTHYROXINE SODIUM
  12. METOPROLOL GEA [Concomitant]
     Active Substance: METOPROLOL
  13. LAMOTRIGIN 1A FARMA [Concomitant]

REACTIONS (3)
  - Suicide attempt [Recovered/Resolved]
  - Overdose [Recovered/Resolved]
  - Toxicity to various agents [Recovered/Resolved]

NARRATIVE: CASE EVENT DATE: 20150505
